FAERS Safety Report 4421542-9 (Version None)
Quarter: 2004Q3

REPORT INFORMATION
  Report Type: 
  Country: None (occurrence: None)
  Receive Date: 20040809
  Receipt Date: 20040809
  Transmission Date: 20050211
  Serious: Yes (Life-Threatening, Hospitalization)
  Sender: FDA-Public Use
  Company Number: None

PATIENT
  Age: 56 Year
  Sex: Male
  Weight: 112 kg

DRUGS (3)
  1. PROPOFOL [Suspect]
     Indication: ANAESTHESIA
     Dosage: 200 MG IV X 1
     Route: 042
     Dates: start: 20040725
  2. FENTANYL [Suspect]
     Indication: ANAESTHESIA
     Dosage: 250 MG IV X 1
     Route: 042
     Dates: start: 20040726
  3. VERSED [Suspect]
     Indication: ANAESTHESIA
     Dosage: 2 MG
     Dates: start: 20040726

REACTIONS (3)
  - ANAESTHETIC COMPLICATION [None]
  - BRADYCARDIA [None]
  - HYPOTENSION [None]
